FAERS Safety Report 13873767 (Version 1)
Quarter: 2017Q3

REPORT INFORMATION
  Report Type: Spontaneous
  Country: US (occurrence: US)
  Receive Date: 20170816
  Receipt Date: 20170816
  Transmission Date: 20171127
  Serious: No
  Sender: FDA-Public Use
  Company Number: US-INTERPRAG-PM-OCA2017-00479

PATIENT

DRUGS (19)
  1. LEVOTHYROXIN [Concomitant]
     Active Substance: LEVOTHYROXINE
     Dosage: 137 UNK, UNK
     Dates: start: 20170516
  2. EZETIMIBE. [Concomitant]
     Active Substance: EZETIMIBE
     Dosage: UNK MG, UNK
     Dates: start: 20170326
  3. LEVOTHYROXINE                      /00068002/ [Concomitant]
     Active Substance: LEVOTHYROXINE
     Dosage: UNK
     Dates: start: 20170307
  4. OCALIVA [Suspect]
     Active Substance: OBETICHOLIC ACID
     Indication: BILIARY CIRRHOSIS
     Dosage: 5 MG, QD
     Route: 048
     Dates: start: 20170331
  5. MODAFINIL. [Concomitant]
     Active Substance: MODAFINIL
     Dosage: UNK
     Dates: start: 20161114
  6. GABAPENTIN. [Concomitant]
     Active Substance: GABAPENTIN
     Dosage: UNK MG, UNK
     Dates: start: 20170215
  7. URSODIOL. [Concomitant]
     Active Substance: URSODIOL
     Dosage: UNK MG, UNK
     Dates: start: 20160831
  8. FLUOXETINE [Concomitant]
     Active Substance: FLUOXETINE HYDROCHLORIDE
     Dosage: UNK MG, UNK
     Dates: start: 20170215
  9. BUPROPION HCL [Concomitant]
     Active Substance: BUPROPION HYDROCHLORIDE
     Dosage: UNK MG, UNK
     Dates: start: 20170215
  10. LEVALBUTEROL                       /01419301/ [Concomitant]
     Dosage: UNK MG, UNK
     Dates: start: 20170310
  11. ZETIA [Concomitant]
     Active Substance: EZETIMIBE
     Dosage: UNK MG, UNK
     Dates: start: 20161223
  12. HYDROCODONE BITARTRATE AND ACETAMINOPHEN [Concomitant]
     Active Substance: ACETAMINOPHEN\HYDROCODONE BITARTRATE
     Dosage: UNK MG, UNK
     Dates: start: 20170425, end: 20170517
  13. HUMALOG [Concomitant]
     Active Substance: INSULIN LISPRO
     Dosage: UNK
     Dates: start: 20170208
  14. CYPROHEPTADIN [Concomitant]
     Dosage: UNK MG, UNK
     Dates: start: 20170323, end: 20170522
  15. METFORMIN [Concomitant]
     Active Substance: METFORMIN HYDROCHLORIDE
     Dosage: UNK MG, UNK
     Dates: start: 20160601
  16. CHLORHEXIDINE GLUCONATE. [Concomitant]
     Active Substance: CHLORHEXIDINE GLUCONATE
     Dosage: UNK
     Dates: start: 20170525
  17. CLINDAMYCIN. [Concomitant]
     Active Substance: CLINDAMYCIN
     Dosage: 300 MG, UNK
     Dates: start: 20170430, end: 20170520
  18. GLIPIZIDE. [Concomitant]
     Active Substance: GLIPIZIDE
     Dosage: UNK MG, UNK
     Dates: start: 20160825
  19. LISINOPRIL. [Concomitant]
     Active Substance: LISINOPRIL
     Dosage: UNK
     Dates: start: 20170215

REACTIONS (3)
  - Memory impairment [Unknown]
  - Drug dose omission [Unknown]
  - Weight increased [Unknown]

NARRATIVE: CASE EVENT DATE: 201703
